FAERS Safety Report 6123740-5 (Version None)
Quarter: 2009Q1

REPORT INFORMATION
  Report Type: 
  Country: None (occurrence: None)
  Receive Date: 20090318
  Receipt Date: 20090318
  Transmission Date: 20090719
  Serious: Yes (Hospitalization)
  Sender: FDA-Public Use
  Company Number: None

PATIENT
  Sex: Female
  Weight: 50 kg

DRUGS (4)
  1. BEVACIZUMAB (RHUMAB VEGF) [Suspect]
     Dosage: 250 MG
     Dates: end: 20090302
  2. FLUOROURACIL [Suspect]
     Dosage: 4200 MG
     Dates: end: 20090304
  3. LEUCOVORIN CALCIUM [Suspect]
     Dosage: 600 MG
     Dates: end: 20090302
  4. ELOXATIN [Suspect]
     Dosage: 128 MG
     Dates: end: 20090302

REACTIONS (3)
  - HYPOTENSION [None]
  - LARGE INTESTINE PERFORATION [None]
  - PERITONITIS [None]
